FAERS Safety Report 14317723 (Version 3)
Quarter: 2023Q4

REPORT INFORMATION
  Report Type: Report from Study
  Country: CA (occurrence: CA)
  Receive Date: 20171222
  Receipt Date: 20231025
  Transmission Date: 20240110
  Serious: Yes (Congenital Anomaly, Other)
  Sender: FDA-Public Use
  Company Number: CA-TESARO, INC.-CA-2017TSO04026

PATIENT
  Age: 58 Year
  Sex: Female
  Weight: 73.5 kg

DRUGS (27)
  1. NIRAPARIB [Suspect]
     Active Substance: NIRAPARIB
     Indication: Ovarian cancer
     Dosage: 300 MG, QD
     Route: 048
     Dates: start: 20170808, end: 20170829
  2. NIRAPARIB [Suspect]
     Active Substance: NIRAPARIB
     Dosage: 200 MG, QD
     Route: 048
     Dates: start: 20170905
  3. GLAXAL BASE [Concomitant]
     Indication: Dermatomyositis
     Dosage: 1 G, PRN
     Route: 061
     Dates: start: 20170724
  4. SYNTHROID [Concomitant]
     Active Substance: LEVOTHYROXINE SODIUM
     Indication: Hypothyroidism
     Dosage: 50 ?G, QD
     Route: 048
     Dates: start: 20170426
  5. DENOSUMAB [Concomitant]
     Active Substance: DENOSUMAB
     Indication: Prophylaxis
     Dosage: 50 MG, EVERY SIX MONTHS
     Route: 042
     Dates: start: 201701
  6. DENOSUMAB [Concomitant]
     Active Substance: DENOSUMAB
     Indication: Osteoporosis
  7. HYDROXYCHLOROQUINE [Concomitant]
     Active Substance: HYDROXYCHLOROQUINE
     Indication: Dermatomyositis
     Dosage: 300 MG, QD
     Route: 048
     Dates: start: 20170726
  8. CETIRIZINE [Concomitant]
     Active Substance: CETIRIZINE HYDROCHLORIDE
     Indication: Dermatomyositis
     Dosage: 10 MG, PRN
     Route: 048
     Dates: start: 20170726
  9. PREDNISONE [Concomitant]
     Active Substance: PREDNISONE
     Indication: Dermatomyositis
     Dosage: 5 MG, TID
     Route: 048
     Dates: start: 20170724
  10. PREDNISONE [Concomitant]
     Active Substance: PREDNISONE
     Dosage: 30 MG, QD
     Route: 048
     Dates: start: 20170831
  11. PREDNISONE [Concomitant]
     Active Substance: PREDNISONE
     Dosage: 5 MG, QD
     Route: 048
     Dates: start: 20171003
  12. VITAMIN B12 [Concomitant]
     Active Substance: CYANOCOBALAMIN
     Indication: Prophylaxis
     Dosage: 1200 ?G, QD
     Route: 048
     Dates: start: 201701
  13. VITAMIN B12 [Concomitant]
     Active Substance: CYANOCOBALAMIN
     Indication: Osteoporosis
  14. VITAMIN D3 [Concomitant]
     Active Substance: CHOLECALCIFEROL
     Indication: Prophylaxis
     Dosage: 10000 UNITS, QW (ONCE WEEKLY)
     Route: 048
     Dates: start: 201701
  15. VITAMIN D3 [Concomitant]
     Active Substance: CHOLECALCIFEROL
     Indication: Osteoporosis
  16. ZOPICLONE [Concomitant]
     Active Substance: ZOPICLONE
     Indication: Prophylaxis
     Dosage: 7.5 MG, PRN
     Route: 048
     Dates: start: 201612
  17. ZOPICLONE [Concomitant]
     Active Substance: ZOPICLONE
     Indication: Insomnia
  18. PANTOPRAZOLE [Concomitant]
     Active Substance: PANTOPRAZOLE
     Indication: Prophylaxis
     Dosage: 40 MG, QD
     Route: 048
     Dates: start: 20170729
  19. PANTOPRAZOLE [Concomitant]
     Active Substance: PANTOPRAZOLE
     Indication: Dyspepsia
  20. ZINC OXIDE [Concomitant]
     Active Substance: ZINC OXIDE
     Indication: Dermatomyositis
     Dosage: 1 APPLICATION, PRN BID
     Route: 061
     Dates: start: 20170807
  21. ATIVAN [Concomitant]
     Active Substance: LORAZEPAM
     Indication: Insomnia
     Dosage: 1 MG, HS (AT BEDTIME)
     Route: 048
     Dates: start: 20170809
  22. BENADRYL [Concomitant]
     Active Substance: DIPHENHYDRAMINE HYDROCHLORIDE
     Indication: Dermatomyositis
     Dosage: 50 MG, PRN Q4H
     Route: 048
     Dates: start: 20170812
  23. CALCIUM CARBONATE [Concomitant]
     Active Substance: CALCIUM CARBONATE
     Indication: Osteoporosis prophylaxis
     Dosage: 500 MG, BID
     Route: 048
     Dates: start: 201701
  24. IMMUNOGLOBULIN [Concomitant]
     Indication: Dermatomyositis
     Dosage: 30 G, SINGLE
     Route: 042
     Dates: start: 20170829
  25. IMMUNOGLOBULIN [Concomitant]
     Dosage: 30 G, SINGLE
     Route: 042
     Dates: start: 20170914
  26. IMMUNOGLOBULIN [Concomitant]
     Dosage: 30 G, SINGLE
     Route: 042
     Dates: start: 20171002
  27. IMMUNOGLOBULIN [Concomitant]
     Dosage: 20 G, SINGLE
     Route: 042
     Dates: start: 20171023

REACTIONS (2)
  - Pulmonary embolism [Recovered/Resolved]
  - Deep vein thrombosis [Recovered/Resolved]

NARRATIVE: CASE EVENT DATE: 20171027
